FAERS Safety Report 25541818 (Version 1)
Quarter: 2025Q3

REPORT INFORMATION
  Report Type: Spontaneous
  Country: EU (occurrence: EU)
  Receive Date: 20250711
  Receipt Date: 20250711
  Transmission Date: 20251021
  Serious: Yes (Hospitalization)
  Sender: ROCHE
  Company Number: None

PATIENT
  Age: 70 Year
  Sex: Male

DRUGS (1)
  1. RITUXIMAB [Suspect]
     Active Substance: RITUXIMAB
     Indication: Extranodal marginal zone B-cell lymphoma (MALT type)
     Route: 065

REACTIONS (4)
  - Immunodeficiency [Recovering/Resolving]
  - Hyponatraemia [Recovering/Resolving]
  - Staphylococcal bacteraemia [Recovering/Resolving]
  - Septic arthritis staphylococcal [Recovering/Resolving]
